FAERS Safety Report 19240894 (Version 2)
Quarter: 2021Q2

REPORT INFORMATION
  Report Type: Spontaneous
  Country: US (occurrence: US)
  Receive Date: 20210511
  Receipt Date: 20210526
  Transmission Date: 20210717
  Serious: No
  Sender: FDA-Public Use
  Company Number: US-ASTRAZENECA-2021A346675

PATIENT
  Age: 24401 Day
  Sex: Female
  Weight: 63.5 kg

DRUGS (2)
  1. BYDUREON BCISE [Suspect]
     Active Substance: EXENATIDE
     Indication: TYPE 2 DIABETES MELLITUS
     Route: 058
     Dates: start: 20210420
  2. BYDUREON [Suspect]
     Active Substance: EXENATIDE
     Indication: TYPE 2 DIABETES MELLITUS
     Route: 058
     Dates: end: 20210413

REACTIONS (3)
  - Product dose omission issue [Unknown]
  - Nervousness [Unknown]
  - Device malfunction [Unknown]

NARRATIVE: CASE EVENT DATE: 20210420
